FAERS Safety Report 6125345-9 (Version None)
Quarter: 2009Q1

REPORT INFORMATION
  Report Type: 
  Country: None (occurrence: None)
  Receive Date: 20090317
  Receipt Date: 20090306
  Transmission Date: 20090719
  Serious: Yes (Life-Threatening)
  Sender: FDA-Public Use
  Company Number: GXKR2009JP02970

PATIENT
  Age: 60 Year
  Sex: Female
  Weight: 54 kg

DRUGS (6)
  1. ALPROSTADIL [Suspect]
     Indication: HYPOTENSION
     Dosage: 0.03 UG/KG/MIN, CONT, INFUSION
  2. PROPOFOL [Suspect]
     Indication: INDUCTION OF ANAESTHESIA
     Dosage: INTRAVENOUS
     Route: 042
  3. PROPRANOLOL [Suspect]
     Indication: HYPOTENSION
     Dosage: 0.6 MG, INTRAVENOUS
     Route: 042
  4. FENTANYL-100 [Concomitant]
  5. VECURONIUM BROMIDE [Concomitant]
  6. NITROUS OXIDE W/ OXYGEN [Concomitant]

REACTIONS (12)
  - ARTERIOSPASM CORONARY [None]
  - ATRIOVENTRICULAR BLOCK [None]
  - BRADYCARDIA [None]
  - CARDIAC ARREST [None]
  - ELECTROCARDIOGRAM ST SEGMENT DEPRESSION [None]
  - ELECTROCARDIOGRAM ST SEGMENT ELEVATION [None]
  - ELECTROCARDIOGRAM T WAVE INVERSION [None]
  - HYPOTENSION [None]
  - NO THERAPEUTIC RESPONSE [None]
  - NODAL RHYTHM [None]
  - VENTRICULAR EXTRASYSTOLES [None]
  - VENTRICULAR TACHYCARDIA [None]
